FAERS Safety Report 24936546 (Version 3)
Quarter: 2025Q3

REPORT INFORMATION
  Report Type: Report from Study
  Country: US (occurrence: US)
  Receive Date: 20250206
  Receipt Date: 20250918
  Transmission Date: 20251021
  Serious: No
  Sender: TRAVERE THERAPEUTICS
  Company Number: US-TRAVERE-2025TVT00134

PATIENT
  Age: 71 Year
  Sex: Male

DRUGS (16)
  1. FILSPARI [Suspect]
     Active Substance: SPARSENTAN
     Indication: IgA nephropathy
     Route: 048
     Dates: start: 20241219, end: 20250127
  2. FILSPARI [Suspect]
     Active Substance: SPARSENTAN
     Route: 048
     Dates: start: 20250211
  3. LANTUS [Concomitant]
     Active Substance: INSULIN GLARGINE
  4. HUMALOG [Concomitant]
     Active Substance: INSULIN LISPRO
  5. CHOLECALCIFEROL [Concomitant]
     Active Substance: CHOLECALCIFEROL
  6. DAPAGLIFLOZIN PROPANEDIOL [Concomitant]
     Active Substance: DAPAGLIFLOZIN PROPANEDIOL
  7. VYTORIN [Concomitant]
     Active Substance: EZETIMIBE\SIMVASTATIN
  8. FINERENONE [Concomitant]
     Active Substance: FINERENONE
  9. FLUOROURACIL [Concomitant]
     Active Substance: FLUOROURACIL
  10. GABAPENTIN [Concomitant]
     Active Substance: GABAPENTIN
  11. KERENDIA [Concomitant]
     Active Substance: FINERENONE
  12. LISINOPRIL [Concomitant]
     Active Substance: LISINOPRIL
  13. METOPROLOL [Concomitant]
     Active Substance: METOPROLOL
  14. OMEGA 3 [Concomitant]
     Active Substance: CAPSAICIN
  15. FLOMAX [Concomitant]
     Active Substance: TAMSULOSIN HYDROCHLORIDE
  16. TRAMADOL [Concomitant]
     Active Substance: TRAMADOL

REACTIONS (8)
  - Hepatic enzyme increased [Unknown]
  - Blood potassium increased [Unknown]
  - Blood urea increased [Unknown]
  - Blood creatinine increased [Unknown]
  - Blood glucose increased [Unknown]
  - Urine albumin/creatinine ratio increased [Unknown]
  - Vitamin D decreased [Unknown]
  - Blood glucose decreased [Unknown]

NARRATIVE: CASE EVENT DATE: 20250117
